FAERS Safety Report 8089709 (Version 4)
Quarter: 2013Q3

REPORT INFORMATION
  Report Type: Report from Study
  Country: JP (occurrence: JP)
  Receive Date: 20110815
  Receipt Date: 20130729
  Transmission Date: 20140515
  Serious: Yes (Hospitalization)
  Sender: FDA-Public Use
  Company Number: JP-JNJFOC-20110804545

PATIENT
  Age: 75 Year
  Sex: Female
  Weight: 60 kg

DRUGS (20)
  1. STELARA [Suspect]
     Indication: PSORIASIS
     Route: 058
     Dates: start: 20120208, end: 20120208
  2. STELARA [Suspect]
     Indication: PSORIASIS
     Route: 058
     Dates: start: 20111118, end: 20111118
  3. STELARA [Suspect]
     Indication: PSORIASIS
     Route: 058
     Dates: start: 20110826, end: 20110826
  4. STELARA [Suspect]
     Indication: PSORIASIS
     Route: 058
     Dates: start: 20121017, end: 20121017
  5. STELARA [Suspect]
     Indication: PSORIASIS
     Route: 058
     Dates: start: 20110511, end: 20110511
  6. STELARA [Suspect]
     Indication: PSORIASIS
     Route: 058
     Dates: start: 20130403, end: 20130403
  7. STELARA [Suspect]
     Indication: PSORIASIS
     Route: 058
     Dates: start: 20120502, end: 20120502
  8. STELARA [Suspect]
     Indication: PSORIASIS
     Route: 058
     Dates: start: 20120725, end: 20120725
  9. STELARA [Suspect]
     Indication: PSORIASIS
     Route: 058
     Dates: start: 20110608, end: 20110608
  10. STELARA [Suspect]
     Indication: PSORIASIS
     Route: 058
     Dates: start: 20130109, end: 20130109
  11. NEORAL [Suspect]
     Indication: PSORIASIS
     Route: 048
     Dates: start: 20110401, end: 20110506
  12. ADALAT [Suspect]
     Indication: HYPERTENSION
     Route: 048
     Dates: start: 20110511, end: 20110512
  13. BLOPRESS [Concomitant]
     Indication: HYPERTENSION
     Route: 048
     Dates: start: 20110220
  14. DIOVAN [Concomitant]
     Indication: HYPERTENSION
     Route: 048
     Dates: start: 20110603
  15. DIOVAN [Concomitant]
     Indication: HYPERTENSION
     Route: 048
     Dates: start: 2008, end: 20110220
  16. LIPITOR [Concomitant]
     Indication: HYPERLIPIDAEMIA
     Route: 048
     Dates: start: 20110603
  17. LIPITOR [Concomitant]
     Indication: HYPERLIPIDAEMIA
     Route: 048
     Dates: start: 2008
  18. IMIPRAMINE HYDROCHLORIDE [Concomitant]
     Indication: PRODUCT USED FOR UNKNOWN INDICATION
     Route: 048
     Dates: start: 2008
  19. TACALCITOL [Concomitant]
     Indication: PSORIASIS
     Route: 061
  20. ISONIAZID [Concomitant]
     Indication: PRODUCT USED FOR UNKNOWN INDICATION
     Route: 048
     Dates: start: 20110420

REACTIONS (3)
  - Hypertension [Recovered/Resolved]
  - Dizziness [Recovered/Resolved]
  - Palpitations [Recovered/Resolved]
